FAERS Safety Report 19235608 (Version 1)
Quarter: 2021Q2

REPORT INFORMATION
  Report Type: Spontaneous
  Country: US (occurrence: US)
  Receive Date: 20210510
  Receipt Date: 20210510
  Transmission Date: 20210717
  Serious: No
  Sender: FDA-Public Use
  Company Number: US-NEBO-PC006823

PATIENT
  Age: 47 Year
  Sex: Female
  Weight: 83.9 kg

DRUGS (3)
  1. MONOFERRIC [Suspect]
     Active Substance: FERRIC DERISOMALTOSE
     Indication: ANAEMIA
     Route: 042
     Dates: start: 20210422, end: 20210422
  2. VITAMIN B12 [Concomitant]
     Active Substance: CYANOCOBALAMIN
     Indication: PERNICIOUS ANAEMIA
     Route: 030
     Dates: start: 202104
  3. TIROSINT [Concomitant]
     Active Substance: LEVOTHYROXINE SODIUM
     Indication: AUTOIMMUNE THYROIDITIS

REACTIONS (4)
  - Nausea [Recovered/Resolved]
  - Urticaria [Not Recovered/Not Resolved]
  - Headache [Recovered/Resolved]
  - Rash pruritic [Not Recovered/Not Resolved]

NARRATIVE: CASE EVENT DATE: 20210423
